FAERS Safety Report 7033229-7 (Version None)
Quarter: 2010Q4

REPORT INFORMATION
  Report Type: 
  Country: None (occurrence: None)
  Receive Date: 20101004
  Receipt Date: 20100917
  Transmission Date: 20110411
  Serious: Yes (Death)
  Sender: FDA-Public Use
  Company Number: AUR-APL-2010-02332

PATIENT
  Age: 52 Year
  Sex: Female

DRUGS (3)
  1. CEFUROXIME AXETIL [Suspect]
     Dosage: CHRONIC LYME DISEASE
     Dates: start: 20091101
  2. TELITHROMYCIN [Suspect]
     Dosage: CHRONIC LYME DISEASE
     Dates: start: 20091101
  3. METRONIDAZOLE [Suspect]
     Indication: CLOSTRIDIAL INFECTION
     Dosage: ORAL
     Route: 048

REACTIONS (3)
  - ASCITES [None]
  - CARDIAC ARREST [None]
  - CLOSTRIDIUM DIFFICILE COLITIS [None]
